FAERS Safety Report 4955714-1 (Version None)
Quarter: 2006Q1

REPORT INFORMATION
  Report Type: 
  Country: None (occurrence: None)
  Receive Date: 20060323
  Receipt Date: 20060315
  Transmission Date: 20060701
  Serious: Yes (Other)
  Sender: FDA-Public Use
  Company Number: 2006036269

PATIENT
  Age: 54 Year
  Sex: Female
  Weight: 57 kg

DRUGS (2)
  1. ATORVASTATIN CALCIUM [Suspect]
     Indication: LIPIDS INCREASED
     Dosage: (10 MG,), ORAL
     Route: 048
     Dates: start: 20050718
  2. ASPIRIN [Suspect]
     Indication: LIPIDS INCREASED
     Dosage: (75 MG,), ORAL
     Route: 048
     Dates: start: 20050718

REACTIONS (1)
  - BREAST CANCER FEMALE [None]
